FAERS Safety Report 13023610 (Version 1)
Quarter: 2016Q4

REPORT INFORMATION
  Report Type: Spontaneous
  Country: US (occurrence: US)
  Receive Date: 20161213
  Receipt Date: 20161213
  Transmission Date: 20170207
  Serious: No
  Sender: FDA-Public Use
  Company Number: US-LPDUSPRD-20160324

PATIENT
  Sex: Female

DRUGS (1)
  1. VENOFER [Suspect]
     Active Substance: IRON SUCROSE
     Dosage: 250MG/100ML, WKLY FOR 4 WEEKS
     Route: 065

REACTIONS (2)
  - Extravasation [Recovered/Resolved with Sequelae]
  - Off label use [Unknown]
